FAERS Safety Report 22054059 (Version 1)
Quarter: 2023Q1

REPORT INFORMATION
  Report Type: Spontaneous
  Country: SK (occurrence: SK)
  Receive Date: 20230302
  Receipt Date: 20230302
  Transmission Date: 20230417
  Serious: Yes (Hospitalization)
  Sender: FDA-Public Use
  Company Number: SK-NOVOPROD-1020912

PATIENT
  Sex: Male
  Weight: 93 kg

DRUGS (4)
  1. XULTOPHY 100/3.6 [Suspect]
     Active Substance: INSULIN DEGLUDEC\LIRAGLUTIDE
     Indication: Diabetes mellitus
     Dosage: UNK
     Route: 058
     Dates: start: 20221024
  2. XULTOPHY 100/3.6 [Suspect]
     Active Substance: INSULIN DEGLUDEC\LIRAGLUTIDE
     Dosage: 36 IU, QD(IN THE ABDOMEN)
     Route: 058
  3. CANAGLIFLOZIN [Concomitant]
     Active Substance: CANAGLIFLOZIN
     Indication: Product used for unknown indication
     Dosage: UNK
  4. DAPAGLIFLOZIN [Concomitant]
     Active Substance: DAPAGLIFLOZIN
     Indication: Product used for unknown indication
     Dosage: 100 MG, BID
     Dates: start: 20211216

REACTIONS (2)
  - Papilloedema [Not Recovered/Not Resolved]
  - Optic neuritis [Not Recovered/Not Resolved]

NARRATIVE: CASE EVENT DATE: 20230125
